FAERS Safety Report 9594499 (Version 1)
Quarter: 2013Q4

REPORT INFORMATION
  Report Type: Spontaneous
  Country: US (occurrence: US)
  Receive Date: 20131004
  Receipt Date: 20131004
  Transmission Date: 20140711
  Serious: No
  Sender: FDA-Public Use
  Company Number: US-GLAXOSMITHKLINE-A1009347A

PATIENT
  Sex: Female

DRUGS (8)
  1. IMITREX [Suspect]
     Indication: MIGRAINE
     Route: 045
  2. IMITREX [Suspect]
     Indication: MIGRAINE
     Route: 048
     Dates: start: 1995, end: 2010
  3. SUMATRIPTAN INJECTION (SUMATRIPTAN) (6 MG) [Suspect]
  4. IMITREX [Suspect]
     Indication: MIGRAINE
  5. ACIPHEX [Concomitant]
  6. VITAMINS [Concomitant]
  7. TOPAMAX [Concomitant]
  8. ANTIDEPRESSANT [Concomitant]

REACTIONS (4)
  - Therapeutic response decreased [Unknown]
  - Drug ineffective [Unknown]
  - Asthenia [Unknown]
  - Expired drug administered [Unknown]
